FAERS Safety Report 5779517-3 (Version None)
Quarter: 2008Q2

REPORT INFORMATION
  Report Type: 
  Country: None (occurrence: None)
  Receive Date: 20080619
  Receipt Date: 20070827
  Transmission Date: 20081010
  Serious: Yes (Hospitalization)
  Sender: FDA-Public Use
  Company Number: US-ASTRAZENECA-2007UW20433

PATIENT
  Age: 56 Year
  Sex: Male

DRUGS (1)
  1. ATACAND [Suspect]
     Route: 048

REACTIONS (1)
  - ANGIOEDEMA [None]
